FAERS Safety Report 23415022 (Version 2)
Quarter: 2024Q1

REPORT INFORMATION
  Report Type: Spontaneous
  Country: AU (occurrence: AU)
  Receive Date: 20240118
  Receipt Date: 20240122
  Transmission Date: 20240409
  Serious: Yes (Other)
  Sender: FDA-Public Use
  Company Number: AU-002147023-NVSC2024AU002173

PATIENT
  Sex: Female

DRUGS (2)
  1. BIMATOPROST [Suspect]
     Active Substance: BIMATOPROST
     Indication: Product used for unknown indication
     Dosage: UNK
     Route: 065
  2. BETAXOLOL HYDROCHLORIDE [Suspect]
     Active Substance: BETAXOLOL HYDROCHLORIDE
     Indication: Glaucoma
     Dosage: UNK
     Route: 065

REACTIONS (7)
  - Eye haemorrhage [Unknown]
  - Eye disorder [Unknown]
  - Eye pain [Unknown]
  - Reaction to preservatives [Unknown]
  - Intraocular pressure fluctuation [Unknown]
  - Product dose omission issue [Unknown]
  - Product formulation issue [Unknown]
